FAERS Safety Report 19243521 (Version 1)
Quarter: 2021Q2

REPORT INFORMATION
  Report Type: Spontaneous
  Country: US (occurrence: US)
  Receive Date: 20210511
  Receipt Date: 20210511
  Transmission Date: 20210717
  Serious: No
  Sender: FDA-Public Use
  Company Number: US-JNJFOC-20210455708

PATIENT

DRUGS (1)
  1. WOMENS ROGAINE UNSCENTED [Suspect]
     Active Substance: MINOXIDIL
     Indication: PRODUCT USED FOR UNKNOWN INDICATION
     Route: 061

REACTIONS (6)
  - Erythema [Unknown]
  - Auricular swelling [Unknown]
  - Pharyngeal erythema [Unknown]
  - Oral pruritus [Unknown]
  - Pharyngeal swelling [Unknown]
  - Pruritus [Unknown]
